FAERS Safety Report 5804421-1 (Version None)
Quarter: 2008Q3

REPORT INFORMATION
  Report Type: 
  Country: None (occurrence: None)
  Receive Date: 20080702
  Receipt Date: 20070827
  Transmission Date: 20090109
  Serious: Yes (Other)
  Sender: FDA-Public Use
  Company Number: HQWYE927730AUG07

PATIENT
  Age: 68 Year
  Sex: Female
  Weight: 77.18 kg

DRUGS (4)
  1. ADVIL [Suspect]
     Indication: ARTHRALGIA
  2. THIAZIDES (THIAZIDES) [Concomitant]
  3. LEXAPRO [Concomitant]
  4. ACETYLSALICYLIC ACID SRT [Concomitant]

REACTIONS (3)
  - ABDOMINAL PAIN UPPER [None]
  - PRURITUS [None]
  - RASH ERYTHEMATOUS [None]
